FAERS Safety Report 6471614-2 (Version None)
Quarter: 2009Q4

REPORT INFORMATION
  Report Type: 
  Country: None (occurrence: None)
  Receive Date: 20091203
  Receipt Date: 20090512
  Transmission Date: 20100525
  Serious: Yes (Hospitalization, Other)
  Sender: FDA-Public Use
  Company Number: US-ELI_LILLY_AND_COMPANY-US200803003497

PATIENT
  Sex: Female
  Weight: 58.957 kg

DRUGS (2)
  1. ZYPREXA [Suspect]
     Dosage: 20 MG, UNK
     Dates: start: 19971215, end: 20061027
  2. ZYPREXA [Suspect]
     Dosage: 30 MG, UNK
     Dates: start: 19971215, end: 20061027

REACTIONS (7)
  - ANAEMIA [None]
  - HYPERLIPIDAEMIA [None]
  - HYPERTENSION [None]
  - OVERDOSE [None]
  - RENAL FAILURE [None]
  - TYPE 2 DIABETES MELLITUS [None]
  - WITHDRAWAL SYNDROME [None]
